FAERS Safety Report 4720590-9 (Version None)
Quarter: 2005Q3

REPORT INFORMATION
  Report Type: 
  Country: None (occurrence: None)
  Receive Date: 20050721
  Receipt Date: 20050714
  Transmission Date: 20060218
  Serious: Yes (Death)
  Sender: FDA-Public Use
  Company Number: US-BRISTOL-MYERS SQUIBB COMPANY-13037965

PATIENT
  Age: 79 Year
  Sex: Female
  Weight: 75 kg

DRUGS (4)
  1. KLOTRIX [Suspect]
     Indication: SUBSTITUTION THERAPY
     Dosage: FOR 7-10 YEARS
  2. ALBUTEROL [Concomitant]
  3. CARDURA [Concomitant]
  4. LASIX [Concomitant]
     Indication: OEDEMA

REACTIONS (1)
  - DEATH [None]
